FAERS Safety Report 8170431-5 (Version None)
Quarter: 2012Q1

REPORT INFORMATION
  Report Type: 
  Country: None (occurrence: None)
  Receive Date: 20120104
  Receipt Date: 20111118
  Transmission Date: 20120608
  Serious: No
  Sender: FDA-Public Use
  Company Number: 2011HGS-002838

PATIENT
  Age: 46 Year
  Sex: Female
  Weight: 63.9572 kg

DRUGS (14)
  1. BABY ASPIRIN (ACETYLSALICYLIC ACID) (ACETYLSALICYLIC ACID) [Concomitant]
  2. BENLYSTA [Suspect]
     Indication: SYSTEMIC LUPUS ERYTHEMATOSUS
     Dosage: 1 IN 28 D, INTRAVENOUS DRIP
     Route: 041
     Dates: start: 20110610
  3. IMURAN [Concomitant]
  4. ZANAFLEX (TIZANIDINE HYDROCHLORIDE) (TIZANIDINE HYDROCHLORIDE) [Concomitant]
  5. TRAMADOL HCL [Concomitant]
  6. VITAMIN C (ASCORBIC ACID) (ASCORBIC ACID) [Concomitant]
  7. VITAMIN D (ERGOCALCIFEROL) (ERGOCALCIFEROL) [Concomitant]
  8. ZYRTEC [Concomitant]
  9. VALTREX (VALACICLOVIR HYDROCHLORIDE) (VALACICLOVIR HYDROCHLORIDE) [Concomitant]
  10. LASIX (LASIX/SCH/) (FUROSEMIDE, FUROSEMIDE SODIUM) [Concomitant]
  11. PHENTERMINE (PHENTERMINE) (PHENTERMINE) [Concomitant]
  12. PLAQUENIL (HYDROXYCHLOROQUINE SULFATE) (HYDROXYCHLOROQUINE SULFATE) [Concomitant]
  13. HYDROXYZINE [Concomitant]
  14. ELMIRON (PENTOSAN POLYSULFATE SODIUM) (PENTOSAN POLYSULFATE SODIUM0 [Concomitant]

REACTIONS (8)
  - OEDEMA PERIPHERAL [None]
  - DIARRHOEA [None]
  - RASH VESICULAR [None]
  - BUTTERFLY RASH [None]
  - FALL [None]
  - AMENORRHOEA [None]
  - SYSTEMIC LUPUS ERYTHEMATOSUS [None]
  - PRURITUS [None]
